FAERS Safety Report 5994364-5 (Version None)
Quarter: 2008Q4

REPORT INFORMATION
  Report Type: 
  Country: None (occurrence: None)
  Receive Date: 20081212
  Receipt Date: 20080908
  Transmission Date: 20090506
  Serious: Yes (Hospitalization)
  Sender: FDA-Public Use
  Company Number: US-ABBOTT-08P-163-0475079-00

PATIENT
  Sex: Female
  Weight: 52.664 kg

DRUGS (6)
  1. HUMIRA [Suspect]
     Indication: RHEUMATOID ARTHRITIS
     Route: 050
     Dates: end: 20080714
  2. LOSARTAN POTASSIUM [Concomitant]
     Indication: HYPERTENSION
     Route: 048
     Dates: start: 19980101
  3. AMLODIPINE [Concomitant]
     Indication: HYPERTENSION
     Route: 048
     Dates: start: 19980101
  4. ACETYLSALICYLIC ACID SRT [Concomitant]
     Indication: DRUG USE FOR UNKNOWN INDICATION
     Route: 048
     Dates: start: 19980101
  5. CENTRUM SILVER [Concomitant]
     Indication: DRUG USE FOR UNKNOWN INDICATION
     Route: 048
  6. BUPROPION HCL [Concomitant]
     Indication: DEPRESSION
     Route: 048
     Dates: start: 20060101

REACTIONS (4)
  - ALOPECIA [None]
  - GASTROOESOPHAGEAL REFLUX DISEASE [None]
  - RHEUMATOID ARTHRITIS [None]
  - WEIGHT DECREASED [None]
